FAERS Safety Report 8202239-6 (Version None)
Quarter: 2012Q1

REPORT INFORMATION
  Report Type: 
  Country: None (occurrence: None)
  Receive Date: 20120312
  Receipt Date: 20120302
  Transmission Date: 20120608
  Serious: Yes (Disabling)
  Sender: FDA-Public Use
  Company Number: FR-EISAI INC-E7273-00294-SPO-FR

PATIENT
  Sex: Male
  Weight: 65 kg

DRUGS (2)
  1. TARGRETIN [Suspect]
     Indication: MYCOSIS FUNGOIDES
     Route: 048
     Dates: start: 20110910, end: 20120123
  2. TARGRETIN [Suspect]
     Route: 048
     Dates: start: 20120124

REACTIONS (6)
  - APATHY [None]
  - DEPRESSION [None]
  - DYSPEPSIA [None]
  - ACNE [None]
  - HYPOTHYROIDISM [None]
  - ASTHENIA [None]
